FAERS Safety Report 5788228-X (Version None)
Quarter: 2008Q2

REPORT INFORMATION
  Report Type: 
  Country: None (occurrence: None)
  Receive Date: 20080625
  Receipt Date: 20080613
  Transmission Date: 20081010
  Serious: Yes (Other)
  Sender: FDA-Public Use
  Company Number: US-PFIZER INC-2008050054

PATIENT
  Sex: Male
  Weight: 84.8 kg

DRUGS (5)
  1. NEURONTIN [Suspect]
     Indication: NEURALGIA
     Dates: start: 20080501, end: 20080613
  2. AMBIEN [Concomitant]
  3. PERCOCET [Concomitant]
  4. FRAGMIN [Concomitant]
  5. VITAMIN CAP [Concomitant]

REACTIONS (3)
  - NEUTROPENIA [None]
  - NEUTROPHIL COUNT INCREASED [None]
  - WHITE BLOOD CELL COUNT INCREASED [None]
